FAERS Safety Report 6615836-6 (Version None)
Quarter: 2010Q1

REPORT INFORMATION
  Report Type: 
  Country: None (occurrence: None)
  Receive Date: 20100305
  Receipt Date: 20100223
  Transmission Date: 20100710
  Serious: Yes (Other)
  Sender: FDA-Public Use
  Company Number: US-PFIZER INC-2009163793

PATIENT
  Sex: Female

DRUGS (2)
  1. VFEND [Suspect]
     Indication: INFECTION
     Dates: start: 20081020
  2. DRUG, UNSPECIFIED [Concomitant]

REACTIONS (1)
  - VISUAL IMPAIRMENT [None]
